FAERS Safety Report 8472302-3 (Version None)
Quarter: 2012Q2

REPORT INFORMATION
  Report Type: 
  Country: None (occurrence: None)
  Receive Date: 20120323
  Receipt Date: 20110822
  Transmission Date: 20120825
  Serious: Yes (Hospitalization, Other)
  Sender: FDA-Public Use
  Company Number: 163-21880-11082558

PATIENT
  Age: 59 Year
  Sex: Male
  Weight: 82.1011 kg

DRUGS (40)
  1. ACYCLOVIR [Concomitant]
  2. BENADRYL [Concomitant]
  3. DOCULASE (DOCUSATE) [Concomitant]
  4. THEOPHYLLINE [Concomitant]
  5. ACETAMINOPHEN [Concomitant]
  6. VITAMIN B6 [Concomitant]
  7. ADVICOR [Concomitant]
  8. ALBUTEROL [Concomitant]
  9. BACTRIM [Concomitant]
  10. MAGNESIUM (MAGNESIUM) [Concomitant]
  11. NEURONTIN [Concomitant]
  12. ALLOPURINOL [Concomitant]
  13. CETRIZINE (CETIRIZINE HYDROCHLORIDE) [Concomitant]
  14. IMDUR [Concomitant]
  15. MULTIVITAMIN [Concomitant]
  16. WELLBUTRIN [Concomitant]
  17. LENALIDOMIDE [Suspect]
     Indication: CHRONIC LYMPHOCYTIC LEUKAEMIA
     Dosage: 5 MG, QD X 28 DAYS, PO
     Route: 048
     Dates: start: 20110607
  18. NOVOLOG [Concomitant]
  19. REQUIP [Concomitant]
  20. TOBRAMYCIN [Concomitant]
  21. TRIMETERNE/HCTZ (DYAZIDE) [Concomitant]
  22. DUONEB (CIMBIVENT) [Concomitant]
  23. LORTAB [Concomitant]
  24. LANTUS [Concomitant]
  25. PROTONIX [Concomitant]
  26. SOLU-MEDROL [Concomitant]
  27. XANAX [Concomitant]
  28. NITROGLYCERIN [Concomitant]
  29. PENTOXIFYLLINE [Concomitant]
  30. SUCRALFATE [Concomitant]
  31. CINNAMON (CINNAMOMUM VERUM) [Concomitant]
  32. GUAIFGENSIN (GUAIFENESIN) [Concomitant]
  33. POTASSIUIM PHOSPHATE (NEUTRA-PHOS-K) [Concomitant]
  34. PROVIGIL [Concomitant]
  35. PULMICORT [Concomitant]
  36. RANITIDINE HCL [Concomitant]
  37. IMMUNE GLOBULIN NOS [Concomitant]
  38. ASCORBIC ACID [Concomitant]
  39. METOPROLOL TARTRATE [Concomitant]
  40. SEROQUEL [Concomitant]

REACTIONS (4)
  - WEIGHT DECREASED [None]
  - TRANSIENT ISCHAEMIC ATTACK [None]
  - MOUTH HAEMORRHAGE [None]
  - DECREASED APPETITE [None]
